FAERS Safety Report 7004138-4 (Version None)
Quarter: 2010Q3

REPORT INFORMATION
  Report Type: 
  Country: None (occurrence: None)
  Receive Date: 20100920
  Receipt Date: 20100203
  Transmission Date: 20110219
  Serious: No
  Sender: FDA-Public Use
  Company Number: US-WYE-H13476210

PATIENT
  Sex: Female
  Weight: 50.39 kg

DRUGS (8)
  1. PRISTIQ [Suspect]
     Indication: DEPRESSION
     Route: 048
     Dates: start: 20091101
  2. SOMA [Concomitant]
  3. TOPAMAX [Concomitant]
  4. TALWIN [Concomitant]
  5. OXYCONTIN [Concomitant]
  6. PERCOCET [Concomitant]
  7. NEURONTIN [Concomitant]
  8. LIPITOR [Concomitant]

REACTIONS (6)
  - ABDOMINAL PAIN [None]
  - APATHY [None]
  - DIARRHOEA [None]
  - FAECES DISCOLOURED [None]
  - INCREASED APPETITE [None]
  - WEIGHT INCREASED [None]
